FAERS Safety Report 5389837-2 (Version None)
Quarter: 2007Q3

REPORT INFORMATION
  Report Type: 
  Country: None (occurrence: None)
  Receive Date: 20070718
  Receipt Date: 20070709
  Transmission Date: 20080115
  Serious: Yes (Other)
  Sender: FDA-Public Use
  Company Number: PHNU2007DE02126

PATIENT
  Age: 39 Year
  Sex: Male

DRUGS (1)
  1. LEPONEX [Suspect]
     Indication: SCHIZOPHRENIA, PARANOID TYPE
     Dosage: 50 MG, BID
     Route: 048
     Dates: start: 20001001

REACTIONS (2)
  - AZOOSPERMIA [None]
  - SPERMATOZOA PROGRESSIVE MOTILITY ABNORMAL [None]
